FAERS Safety Report 13244540 (Version 1)
Quarter: 2017Q1

REPORT INFORMATION
  Report Type: Spontaneous
  Country: US (occurrence: US)
  Receive Date: 20170217
  Receipt Date: 20170217
  Transmission Date: 20170428
  Serious: Yes (Death)
  Sender: FDA-Public Use
  Company Number: None

PATIENT
  Age: 50 Year
  Sex: Female

DRUGS (1)
  1. STIVARGA [Suspect]
     Active Substance: REGORAFENIB
     Indication: NEOPLASM MALIGNANT
     Dosage: 40MG 4 TABS FOR 21 DAYS AND 7 DAYS OFF N/A
     Dates: start: 20161128, end: 20161214

REACTIONS (1)
  - Death [None]

NARRATIVE: CASE EVENT DATE: 20170116
